FAERS Safety Report 7235408-2 (Version None)
Quarter: 2011Q1

REPORT INFORMATION
  Report Type: 
  Country: None (occurrence: None)
  Receive Date: 20110110
  Receipt Date: 20110103
  Transmission Date: 20110831
  Serious: Yes (Hospitalization)
  Sender: FDA-Public Use
  Company Number: 024738

PATIENT
  Sex: Male

DRUGS (1)
  1. KEPPRA [Suspect]
     Indication: EPILEPSY
     Dosage: (THERAPY DATES FROM :2007 OR 2008, ORAL), (ORAL)
     Route: 048

REACTIONS (2)
  - BLOOD URINE PRESENT [None]
  - PYREXIA [None]
